FAERS Safety Report 5238538-X (Version None)
Quarter: 2007Q1

REPORT INFORMATION
  Report Type: 
  Country: None (occurrence: None)
  Receive Date: 20070215
  Receipt Date: 20070213
  Transmission Date: 20070707
  Serious: Yes (Other)
  Sender: FDA-Public Use
  Company Number: JP-JPN-A200700473

PATIENT
  Age: 28 Year
  Sex: Female

DRUGS (8)
  1. PAXIL [Suspect]
     Indication: DRUG USE FOR UNKNOWN INDICATION
     Route: 048
     Dates: start: 20061107, end: 20070123
  2. POLYFUL [Concomitant]
     Route: 048
  3. LEXOTAN [Concomitant]
     Route: 048
  4. DOGMATYL [Concomitant]
     Route: 065
  5. OMEPRAZEN [Concomitant]
     Route: 048
  6. TRYPTANOL [Concomitant]
     Route: 048
  7. GOODMIN [Concomitant]
     Route: 048
  8. METLIGINE [Concomitant]
     Route: 048

REACTIONS (1)
  - SELF MUTILATION [None]
